FAERS Safety Report 4318760-7 (Version None)
Quarter: 2004Q1

REPORT INFORMATION
  Report Type: 
  Country: None (occurrence: None)
  Receive Date: 20040315
  Receipt Date: 20040226
  Transmission Date: 20041129
  Serious: Yes (Hospitalization)
  Sender: FDA-Public Use
  Company Number: 1997-YA-00806

PATIENT
  Sex: Male

DRUGS (6)
  1. TAMSULOSIN (KA) [Suspect]
     Indication: BENIGN PROSTATIC HYPERPLASIA
     Dosage: 0.4 MG PO
     Route: 048
     Dates: start: 19970625
  2. ACETYLSALICYLIC ACID SRT [Concomitant]
  3. CISAPRIDE (CISAPRIDE) [Concomitant]
  4. NITROGLYCERIN [Concomitant]
  5. TACRINE HYDROCHLORIDE (TACRINE HYDROCHLORIDE) [Concomitant]
  6. MOLSIDOMINE (MOLSIDOMINE) [Concomitant]

REACTIONS (2)
  - GASTRIC ULCER [None]
  - HAEMATEMESIS [None]
